FAERS Safety Report 6905424-6 (Version None)
Quarter: 2010Q3

REPORT INFORMATION
  Report Type: 
  Country: None (occurrence: None)
  Receive Date: 20100804
  Receipt Date: 20100726
  Transmission Date: 20110219
  Serious: Yes (Other)
  Sender: FDA-Public Use
  Company Number: FR-ASTRAZENECA-2010SE35012

PATIENT
  Age: 70 Year
  Sex: Female

DRUGS (5)
  1. CRESTOR [Suspect]
     Route: 048
     Dates: start: 20100201, end: 20100323
  2. LERCAN [Suspect]
     Route: 048
     Dates: start: 20100201, end: 20100323
  3. NEBIVOLOL HCL [Suspect]
     Route: 048
     Dates: start: 20100201, end: 20100323
  4. COZAAR [Concomitant]
  5. ZOMETA [Concomitant]
     Dates: start: 20100201

REACTIONS (1)
  - DRUG RASH WITH EOSINOPHILIA AND SYSTEMIC SYMPTOMS [None]
